FAERS Safety Report 10377521 (Version 1)
Quarter: 2014Q1

REPORT INFORMATION
  Report Type: Spontaneous
  Country: US (occurrence: None)
  Receive Date: 20140306
  Receipt Date: 20140306
  Transmission Date: 20141002
  Serious: Yes (Hospitalization, Other)
  Sender: FDA-Public Use
  Company Number: 163-21880-13031927

PATIENT
  Age: 69 Year
  Sex: Female

DRUGS (17)
  1. REVLIMID (LENALIDOMIDE) (25 MILLIGRAM, CAPSULES) [Suspect]
     Indication: PLASMA CELL MYELOMA
     Dosage: 25MG, 14 IN 21 D, PO
     Route: 048
     Dates: start: 20130228
  2. DEXAMETHASONE [Concomitant]
  3. VELCADE (BORTEZOMIB) [Concomitant]
  4. IBUPROFEN [Concomitant]
  5. PERCOCET (OXYCOCET) [Concomitant]
  6. PACKED RED CELLS (BLOOD CELLS, PACKED HUMAN) [Concomitant]
  7. IRON [Concomitant]
  8. BACTRIM DS [Concomitant]
  9. VITAMIN D (COLECALCIFEROL) [Concomitant]
  10. WOMENS ONE DAILY TABLET (MULTIVITAMINS) [Concomitant]
  11. ACYCLOVIR (ACICLOVIR) [Concomitant]
  12. SENNA [Concomitant]
  13. DOCUSATE SODIUM [Concomitant]
  14. ZOFRAN (ONDANSETRON HYDROCHLORIDE) [Concomitant]
  15. CALCIUM + D )OS-CAL) [Concomitant]
  16. TRADODONE HCL [Concomitant]
  17. COUMADIN (WARFARIN SODIUM) [Concomitant]

REACTIONS (5)
  - Compression fracture [None]
  - Intervertebral discitis [None]
  - Dyspnoea [None]
  - Swelling [None]
  - Back pain [None]
